FAERS Safety Report 5952241-X (Version None)
Quarter: 2008Q4

REPORT INFORMATION
  Report Type: 
  Country: None (occurrence: None)
  Receive Date: 20081022
  Receipt Date: 20080707
  Transmission Date: 20090506
  Serious: No
  Sender: FDA-Public Use
  Company Number: SPV1-2008-01446

PATIENT
  Sex: Male

DRUGS (2)
  1. VYVANSE [Suspect]
     Indication: ATTENTION DEFICIT/HYPERACTIVITY DISORDER
     Dosage: 1X/DAY:QD, ORAL
     Route: 048
     Dates: start: 20080101
  2. ALBUTEROL /00139501/ (SALBUTAMOL) [Concomitant]

REACTIONS (3)
  - ANOREXIA [None]
  - BLOOD PRESSURE INCREASED [None]
  - WEIGHT DECREASED [None]
